FAERS Safety Report 12432208 (Version 4)
Quarter: 2016Q4

REPORT INFORMATION
  Report Type: Report from Study
  Country: US (occurrence: US)
  Receive Date: 20160603
  Receipt Date: 20161011
  Transmission Date: 20170207
  Serious: Yes (Hospitalization, Other)
  Sender: FDA-Public Use
  Company Number: US-BAYER-2016-099524

PATIENT
  Age: 65 Year
  Sex: Male

DRUGS (7)
  1. ADEMPAS [Interacting]
     Active Substance: RIOCIGUAT
     Indication: PULMONARY ARTERIAL HYPERTENSION
     Dosage: 1.5 MG, BID AND 2 MG EVERY NIGHT
     Route: 048
     Dates: start: 20160519
  2. SINEMET [Interacting]
     Active Substance: CARBIDOPA\LEVODOPA
     Dosage: 1 DF, TID
  3. ADEMPAS [Suspect]
     Active Substance: RIOCIGUAT
     Indication: PULMONARY HYPERTENSION
     Dosage: UNK
     Route: 048
     Dates: start: 201602
  4. SINEMET [Interacting]
     Active Substance: CARBIDOPA\LEVODOPA
     Dosage: 1 AND HALF TABLET, TID
     Dates: start: 20160519, end: 201605
  5. SINEMET [Interacting]
     Active Substance: CARBIDOPA\LEVODOPA
     Dosage: 1 DF, TID
     Dates: start: 201605
  6. ADEMPAS [Interacting]
     Active Substance: RIOCIGUAT
     Indication: PULMONARY HYPERTENSION
     Dosage: 1.5 MG, TID
     Route: 048
     Dates: start: 20160405, end: 20160630
  7. ADEMPAS [Interacting]
     Active Substance: RIOCIGUAT
     Indication: PULMONARY HYPERTENSION
     Dosage: 2 MG, TID
     Route: 048
     Dates: start: 20160531

REACTIONS (7)
  - Infection [None]
  - Terminal state [None]
  - General physical health deterioration [None]
  - Mental status changes [Recovering/Resolving]
  - Drug interaction [Recovering/Resolving]
  - Gastrointestinal disorder [None]
  - Asthenia [None]

NARRATIVE: CASE EVENT DATE: 20160530
